FAERS Safety Report 8427076-9 (Version None)
Quarter: 2012Q2

REPORT INFORMATION
  Report Type: 
  Country: None (occurrence: None)
  Receive Date: 20120611
  Receipt Date: 20120528
  Transmission Date: 20120825
  Serious: Yes (Death, Other)
  Sender: FDA-Public Use
  Company Number: PL-ROCHE-1076372

PATIENT

DRUGS (1)
  1. ALTEPLASE [Suspect]
     Indication: FIBRINOLYSIS

REACTIONS (4)
  - HAEMORRHAGE [None]
  - DEATH [None]
  - MYOCARDIAL INFARCTION [None]
  - HAEMORRHAGIC STROKE [None]
